FAERS Safety Report 9742167 (Version 2)
Quarter: 2014Q1

REPORT INFORMATION
  Report Type: Spontaneous
  Country: AR (occurrence: AR)
  Receive Date: 20131210
  Receipt Date: 20140219
  Transmission Date: 20141002
  Serious: Yes (Other)
  Sender: FDA-Public Use
  Company Number: AR-AMGEN-ARGSP2013086296

PATIENT
  Age: 86 Year
  Sex: Female

DRUGS (2)
  1. ENBREL [Suspect]
     Indication: RHEUMATOID ARTHRITIS
     Dosage: 50 MG, UNK
     Route: 065
     Dates: start: 20040826
  2. DIOXAFLEX B12                      /01316601/ [Concomitant]
     Indication: PAIN
     Dosage: 50 MG, 1X/DAY, OR 2XDAY, DEPENDING PAIN.

REACTIONS (1)
  - Abasia [Not Recovered/Not Resolved]
